FAERS Safety Report 5392746-6 (Version None)
Quarter: 2007Q3

REPORT INFORMATION
  Report Type: 
  Country: None (occurrence: None)
  Receive Date: 20070720
  Receipt Date: 20070710
  Transmission Date: 20080115
  Serious: Yes (Other)
  Sender: FDA-Public Use
  Company Number: FR-PFIZER INC-2007030173

PATIENT
  Sex: Male

DRUGS (7)
  1. AMLODIPINE [Suspect]
     Indication: HYPERTENSION
     Route: 048
     Dates: start: 20030514, end: 20070122
  2. LIPANTHYL [Concomitant]
     Indication: INFARCTION
     Route: 048
  3. KARDEGIC [Concomitant]
     Indication: INFARCTION
     Route: 048
     Dates: start: 20021030
  4. ATENOLOL [Concomitant]
     Indication: INFARCTION
     Dates: start: 20021030
  5. ZOLPIDEM TARTRATE [Concomitant]
     Indication: INSOMNIA
     Route: 048
     Dates: start: 19990525
  6. FLUTICASONE PROPIONATE [Concomitant]
     Indication: ASTHMA
     Route: 055
     Dates: start: 19981204
  7. XATRAL [Concomitant]
     Indication: NOCTURIA
     Route: 048
     Dates: start: 20021220, end: 20030716

REACTIONS (2)
  - NOCTURIA [None]
  - POLYURIA [None]
